FAERS Safety Report 21679423 (Version 1)
Quarter: 2022Q4

REPORT INFORMATION
  Report Type: Spontaneous
  Country: CN (occurrence: CN)
  Receive Date: 20221205
  Receipt Date: 20221205
  Transmission Date: 20230112
  Serious: Yes (Other)
  Sender: FDA-Public Use
  Company Number: CN-SA-SAC20221129001255

PATIENT
  Sex: Female
  Weight: 49 kg

DRUGS (5)
  1. THYMOGLOBULIN [Suspect]
     Active Substance: LAPINE T-LYMPHOCYTE IMMUNE GLOBULIN
     Indication: Immunosuppression
     Dosage: 100 MG; QD
     Route: 065
     Dates: start: 20221118, end: 20221121
  2. PROMETHAZINE HYDROCHLORIDE [Concomitant]
     Active Substance: PROMETHAZINE HYDROCHLORIDE
     Dosage: 25 MG
     Route: 030
  3. CALCIUM GLUCONATE [Concomitant]
     Active Substance: CALCIUM GLUCONATE
     Dosage: 1 G
  4. DEXAMETHASONE SODIUM PHOSPHATE [Concomitant]
     Active Substance: DEXAMETHASONE SODIUM PHOSPHATE
     Dosage: 5 MG
  5. SODIUM CHLORIDE [Concomitant]
     Active Substance: SODIUM CHLORIDE
     Dosage: 500 ML; QD
     Route: 041
     Dates: start: 20221118, end: 20221121

REACTIONS (1)
  - Hyperpyrexia [Recovered/Resolved]

NARRATIVE: CASE EVENT DATE: 20221118
